FAERS Safety Report 5831428-0 (Version None)
Quarter: 2008Q3

REPORT INFORMATION
  Report Type: 
  Country: None (occurrence: None)
  Receive Date: 20080801
  Receipt Date: 20080722
  Transmission Date: 20090109
  Serious: Yes (Other)
  Sender: FDA-Public Use
  Company Number: US-PFIZER INC-2008059544

PATIENT
  Sex: Female
  Weight: 109.09 kg

DRUGS (6)
  1. CHANTIX [Suspect]
  2. SEROQUEL [Concomitant]
     Indication: ANXIETY
  3. VALIUM [Concomitant]
  4. PAXIL [Concomitant]
  5. NAPROSYN [Concomitant]
  6. FLEXERIL [Concomitant]

REACTIONS (2)
  - ANXIETY [None]
  - ILL-DEFINED DISORDER [None]
